FAERS Safety Report 7166378-3 (Version None)
Quarter: 2010Q4

REPORT INFORMATION
  Report Type: 
  Country: None (occurrence: None)
  Receive Date: 20101216
  Receipt Date: 20101203
  Transmission Date: 20110411
  Serious: Yes (Hospitalization)
  Sender: FDA-Public Use
  Company Number: US-ELI_LILLY_AND_COMPANY-US201009004220

PATIENT
  Sex: Female
  Weight: 90.703 kg

DRUGS (18)
  1. FORTEO [Suspect]
     Indication: OSTEOPOROSIS
     Dosage: 20 UG, DAILY (1/D)
     Route: 058
  2. LISINOPRIL [Concomitant]
  3. METOPROLOL TARTRATE [Concomitant]
  4. NITROGLYCERIN [Concomitant]
  5. PROMETHAZINE [Concomitant]
  6. HYDROCHLOROTHIAZIDE [Concomitant]
  7. LEVOXYL [Concomitant]
  8. NOVOLOG [Concomitant]
  9. PHENYTOIN [Concomitant]
  10. TYLENOL (CAPLET) [Concomitant]
  11. TYLENOL PM [Concomitant]
  12. ALLOPURINOL [Concomitant]
  13. SIMVASTATIN [Concomitant]
  14. GEMFIBROZIL [Concomitant]
  15. NORTRIPTYLINE HCL [Concomitant]
  16. ALPHA-LIPOIC ACID [Concomitant]
  17. VITAMIN D3 [Concomitant]
  18. PROZAC [Concomitant]

REACTIONS (1)
  - STRESS CARDIOMYOPATHY [None]
